FAERS Safety Report 5931925-3 (Version None)
Quarter: 2008Q4

REPORT INFORMATION
  Report Type: 
  Country: None (occurrence: None)
  Receive Date: 20081027
  Receipt Date: 20081017
  Transmission Date: 20090506
  Serious: Yes (Disabling)
  Sender: FDA-Public Use
  Company Number: PHHY2008FR12928

PATIENT
  Sex: Female

DRUGS (3)
  1. ZOMETA [Suspect]
     Indication: METASTASES TO BONE
     Dosage: 4 MG, QMO
     Route: 042
     Dates: start: 20050831, end: 20060901
  2. DOXORUBICIN HCL [Suspect]
     Indication: BREAST CANCER
     Dosage: UNK
     Dates: start: 20080305
  3. AVASTIN [Suspect]
     Indication: BREAST CANCER
     Dosage: UNK
     Dates: start: 20080521

REACTIONS (8)
  - APHTHOUS STOMATITIS [None]
  - DEBRIDEMENT [None]
  - DENTAL FISTULA [None]
  - IMPAIRED HEALING [None]
  - INFECTION [None]
  - OSTEONECROSIS [None]
  - PURULENCE [None]
  - TOOTH EXTRACTION [None]
